FAERS Safety Report 6609560-3 (Version None)
Quarter: 2010Q2

REPORT INFORMATION
  Report Type: 
  Country: None (occurrence: None)
  Receive Date: 20100302
  Receipt Date: 20100219
  Transmission Date: 20101027
  Serious: Yes (Other)
  Sender: FDA-Public Use
  Company Number: IT-BAXTER-2010BH002476

PATIENT
  Age: 59 Year
  Sex: Male

DRUGS (21)
  1. GAMMAGARD S/D [Suspect]
     Indication: DEMYELINATING POLYNEUROPATHY
     Route: 042
     Dates: start: 20091202
  2. GAMMAGARD S/D [Suspect]
     Indication: OFF LABEL USE
     Route: 042
     Dates: start: 20091202
  3. GAMMAGARD S/D [Suspect]
     Route: 042
     Dates: start: 20100218, end: 20100219
  4. GAMMAGARD S/D [Suspect]
     Route: 042
     Dates: start: 20100218, end: 20100219
  5. GAMMAGARD S/D [Suspect]
     Route: 042
     Dates: start: 20091201, end: 20091201
  6. GAMMAGARD S/D [Suspect]
     Route: 042
     Dates: start: 20091201, end: 20091201
  7. GAMMAGARD S/D [Suspect]
     Route: 042
     Dates: start: 20091230, end: 20091230
  8. GAMMAGARD S/D [Suspect]
     Route: 042
     Dates: start: 20091230, end: 20091230
  9. ENDOBULIN [Suspect]
     Indication: DEMYELINATING POLYNEUROPATHY
     Route: 065
     Dates: start: 20070901, end: 20090401
  10. ENDOBULIN [Suspect]
     Indication: OFF LABEL USE
     Route: 065
     Dates: start: 20070901, end: 20090401
  11. GAMMAGARD LIQUID [Suspect]
     Indication: DEMYELINATING POLYNEUROPATHY
     Route: 065
     Dates: start: 20091202, end: 20091202
  12. GAMMAGARD LIQUID [Suspect]
     Indication: OFF LABEL USE
     Route: 065
     Dates: start: 20091202, end: 20091202
  13. GAMMAGARD LIQUID [Suspect]
     Route: 065
     Dates: start: 20090401, end: 20090801
  14. GAMMAGARD LIQUID [Suspect]
     Route: 065
     Dates: start: 20090401, end: 20090801
  15. FLEBOGAMMA [Suspect]
     Indication: DEMYELINATING POLYNEUROPATHY
     Route: 042
  16. FLEBOGAMMA [Suspect]
     Route: 042
     Dates: start: 20090901, end: 20091101
  17. FLEBOGAMMA [Suspect]
     Route: 042
     Dates: start: 20091229, end: 20091229
  18. FLEBOGAMMA [Suspect]
     Route: 042
     Dates: start: 20070901, end: 20090401
  19. SANDIMMUNE [Concomitant]
     Route: 048
  20. DOXAZOSIN [Concomitant]
     Route: 048
  21. BISOPROLOL [Concomitant]
     Route: 048

REACTIONS (1)
  - DEEP VEIN THROMBOSIS [None]
